FAERS Safety Report 11984095 (Version 1)
Quarter: 2016Q1

REPORT INFORMATION
  Report Type: Spontaneous
  Country: JP (occurrence: JP)
  Receive Date: 20160201
  Receipt Date: 20160201
  Transmission Date: 20160526
  Serious: Yes (Other)
  Sender: FDA-Public Use
  Company Number: PHHY2012JP100875

PATIENT
  Sex: Female

DRUGS (7)
  1. COMTAN [Suspect]
     Active Substance: ENTACAPONE
     Dosage: 200 MG, QD
     Route: 048
     Dates: start: 2012
  2. MENESIT [Concomitant]
     Active Substance: CARBIDOPA\LEVODOPA
     Indication: PRODUCT USED FOR UNKNOWN INDICATION
     Dosage: 9 DF, UNK
     Route: 048
  3. COMTAN [Suspect]
     Active Substance: ENTACAPONE
     Dosage: 300 MG, QD
     Route: 048
     Dates: start: 20120925
  4. COMTAN [Suspect]
     Active Substance: ENTACAPONE
     Dosage: 300 MG, QD
     Route: 048
     Dates: start: 20120413
  5. COMTAN [Suspect]
     Active Substance: ENTACAPONE
     Indication: PARKINSON^S DISEASE
     Dosage: 100 MG, QD
     Route: 048
     Dates: start: 20120406
  6. BI SIFROL [Concomitant]
     Active Substance: PRAMIPEXOLE
     Indication: PRODUCT USED FOR UNKNOWN INDICATION
     Dosage: 7 DF, UNK
     Route: 048
  7. COMTAN [Suspect]
     Active Substance: ENTACAPONE
     Dosage: 200 MG, QD
     Route: 048
     Dates: start: 20120411

REACTIONS (4)
  - Nausea [Unknown]
  - Blood pressure increased [Not Recovered/Not Resolved]
  - Muscle rigidity [Unknown]
  - Headache [Unknown]

NARRATIVE: CASE EVENT DATE: 201210
